FAERS Safety Report 9341775 (Version 1)
Quarter: 2013Q2

REPORT INFORMATION
  Report Type: Spontaneous
  Country: DE (occurrence: DE)
  Receive Date: 20130611
  Receipt Date: 20130611
  Transmission Date: 20140414
  Serious: Yes (Hospitalization, Other)
  Sender: FDA-Public Use
  Company Number: DE-JNJFOC-20130601115

PATIENT
  Sex: Female

DRUGS (3)
  1. SIMPONI [Suspect]
     Indication: SPONDYLOARTHROPATHY
     Route: 058
     Dates: start: 201105
  2. SIMPONI [Suspect]
     Indication: SPONDYLOARTHROPATHY
     Route: 058
     Dates: start: 201304
  3. CORTISONE [Concomitant]
     Route: 065

REACTIONS (3)
  - Spondyloarthropathy [Not Recovered/Not Resolved]
  - Abscess [Recovering/Resolving]
  - Periostitis [Unknown]
